FAERS Safety Report 8547857-0 (Version None)
Quarter: 2012Q3

REPORT INFORMATION
  Report Type: 
  Country: None (occurrence: None)
  Receive Date: 20120727
  Receipt Date: 20120515
  Transmission Date: 20120928
  Serious: Yes (Hospitalization)
  Sender: FDA-Public Use
  Company Number: US-ASTRAZENECA-2009UW06609

PATIENT
  Age: 45 Year
  Sex: Female
  Weight: 50.8 kg

DRUGS (9)
  1. LITHIUM CARBONATE [Concomitant]
     Indication: BIPOLAR DISORDER
  2. CITALOPRAM HYDROBROMIDE [Concomitant]
  3. VITAMIN TAB [Concomitant]
     Indication: VITAMIN SUPPLEMENTATION
  4. RITALIN [Concomitant]
     Dates: end: 20090303
  5. SEROQUEL [Suspect]
     Route: 048
  6. ZOMIG [Suspect]
     Indication: MIGRAINE
     Route: 048
  7. SEROQUEL [Suspect]
     Dosage: 25-400 MG
     Route: 048
     Dates: start: 20080901
  8. SEROQUEL [Suspect]
     Route: 048
  9. PROPRANOLOL [Concomitant]
     Indication: MIGRAINE PROPHYLAXIS

REACTIONS (4)
  - FEELING ABNORMAL [None]
  - SOMNOLENCE [None]
  - INTENTIONAL DRUG MISUSE [None]
  - HEADACHE [None]
